FAERS Safety Report 14344026 (Version 3)
Quarter: 2018Q1

REPORT INFORMATION
  Report Type: Report from Study
  Country: JP (occurrence: JP)
  Receive Date: 20180102
  Receipt Date: 20180222
  Transmission Date: 20180509
  Serious: Yes (Hospitalization)
  Sender: FDA-Public Use
  Company Number: JP-PFIZER INC-2017441216

PATIENT
  Age: 82 Year
  Sex: Female
  Weight: 52 kg

DRUGS (6)
  1. LIVALO [Concomitant]
     Active Substance: PITAVASTATIN CALCIUM
     Route: 048
  2. XELJANZ [Suspect]
     Active Substance: TOFACITINIB CITRATE
     Indication: RHEUMATOID ARTHRITIS
     Dosage: 5 MG, 2X/DAY
     Route: 048
     Dates: start: 20150428
  3. PREDONINE [Suspect]
     Active Substance: PREDNISOLONE
     Dosage: 3.5 MG
     Route: 048
  4. EDIROL [Concomitant]
     Active Substance: ELDECALCITOL
     Route: 048
  5. FOLIAMIN [Concomitant]
     Active Substance: FOLIC ACID
     Route: 048
  6. METOLATE [Suspect]
     Active Substance: METHOTREXATE
     Indication: RHEUMATOID ARTHRITIS
     Dosage: 12 MG, WEEKLY

REACTIONS (2)
  - Post procedural infection [Recovered/Resolved]
  - Avulsion fracture [Recovering/Resolving]

NARRATIVE: CASE EVENT DATE: 20170112
